FAERS Safety Report 8463211-4 (Version None)
Quarter: 2012Q2

REPORT INFORMATION
  Report Type: 
  Country: None (occurrence: None)
  Receive Date: 20120625
  Receipt Date: 20120621
  Transmission Date: 20120825
  Serious: Yes (Death)
  Sender: FDA-Public Use
  Company Number: US-ASTRAZENECA-2012SE26465

PATIENT
  Age: 74 Year
  Sex: Female

DRUGS (11)
  1. PREVACID 24 HR [Concomitant]
     Route: 048
  2. CLARINEX [Concomitant]
     Route: 048
  3. CALCIUM 1000+D [Concomitant]
     Dosage: 1000-800 MG DAILY
     Route: 048
  4. PAPAYA ENZYMES [Concomitant]
     Route: 048
  5. ASPIRIN [Concomitant]
     Route: 048
  6. SYNTHROID [Concomitant]
     Route: 048
  7. VITAMIN B-12 [Concomitant]
     Route: 048
  8. CAPRELSA [Suspect]
     Indication: THYROID CANCER
     Route: 048
  9. METOPROLOL TARTRATE [Concomitant]
     Route: 048
  10. LORTAB [Concomitant]
     Route: 048
  11. CLONAZEPAM [Concomitant]
     Route: 048

REACTIONS (6)
  - DIARRHOEA [None]
  - JOINT SWELLING [None]
  - PALPITATIONS [None]
  - CEREBRAL THROMBOSIS [None]
  - FATIGUE [None]
  - MUSCULOSKELETAL PAIN [None]
